FAERS Safety Report 21792520 (Version 1)
Quarter: 2022Q4

REPORT INFORMATION
  Report Type: Report from Study
  Country: CA (occurrence: CA)
  Receive Date: 20221229
  Receipt Date: 20221229
  Transmission Date: 20230112
  Serious: Yes (Other)
  Sender: FDA-Public Use
  Company Number: CA-BAUSCH-BL-2021-035087

PATIENT
  Age: 75 Year
  Sex: Male

DRUGS (3)
  1. SILIQ [Suspect]
     Active Substance: BRODALUMAB
     Indication: Psoriasis
     Dosage: 210MG/ 1.5 ML, WEEK (0); WEEK 0 -15/OCT/2021, WEEK 2- 21/OCT/2022, WEEK 3- 28/OCT/2021
     Route: 058
     Dates: start: 20211015, end: 20211028
  2. SILIQ [Suspect]
     Active Substance: BRODALUMAB
     Dosage: 210MG/ 1.5 ML, Q 2 WEEKS
     Route: 058
     Dates: start: 20211111
  3. SILIQ [Suspect]
     Active Substance: BRODALUMAB
     Dosage: 210MG/ 1.5 ML, RE-INDUCTION WEEKLY
     Route: 058
     Dates: start: 20221216

REACTIONS (11)
  - Pancreatic carcinoma [Not Recovered/Not Resolved]
  - Blood pressure diastolic decreased [Unknown]
  - Psoriasis [Not Recovered/Not Resolved]
  - Pain in extremity [Unknown]
  - Dizziness postural [Recovered/Resolved]
  - Malaise [Unknown]
  - Abdominal pain [Unknown]
  - Myalgia [Recovered/Resolved]
  - Nausea [Unknown]
  - Headache [Unknown]
  - Diarrhoea [Unknown]

NARRATIVE: CASE EVENT DATE: 20211001
